FAERS Safety Report 23267962 (Version 2)
Quarter: 2023Q4

REPORT INFORMATION
  Report Type: Spontaneous
  Country: JP (occurrence: JP)
  Receive Date: 20231206
  Receipt Date: 20231221
  Transmission Date: 20240109
  Serious: Yes (Other)
  Sender: FDA-Public Use
  Company Number: JP-AMGEN-JPNSP2023171060

PATIENT
  Sex: Male
  Weight: 61 kg

DRUGS (2)
  1. BLINCYTO [Suspect]
     Active Substance: BLINATUMOMAB
     Indication: B precursor type acute leukaemia
     Dosage: 9 MICROGRAM, QD (CONTINUING DRIP INFUSION)
     Route: 042
     Dates: start: 20230919, end: 2023
  2. BLINCYTO [Suspect]
     Active Substance: BLINATUMOMAB
     Dosage: UNK, 24 HOURS DRIP INFUSION IN VEIN CONTINUING (CENTRAL VENOUS)
     Route: 042
     Dates: start: 20231031, end: 20231128

REACTIONS (8)
  - B precursor type acute leukaemia [Unknown]
  - Muscular weakness [Unknown]
  - Dizziness [Unknown]
  - Headache [Unknown]
  - Pyrexia [Recovered/Resolved]
  - Full blood count decreased [Unknown]
  - Fall [Unknown]
  - Asthenia [Recovered/Resolved]

NARRATIVE: CASE EVENT DATE: 20230920
